FAERS Safety Report 6111150-6 (Version None)
Quarter: 2009Q1

REPORT INFORMATION
  Report Type: 
  Country: None (occurrence: None)
  Receive Date: 20090311
  Receipt Date: 20090305
  Transmission Date: 20090719
  Serious: Yes (Disabling)
  Sender: FDA-Public Use
  Company Number: JP-ASTRAZENECA-2009AP01756

PATIENT
  Age: 76 Year
  Sex: Male
  Weight: 70 kg

DRUGS (8)
  1. CRESTOR [Suspect]
     Route: 048
     Dates: start: 20071012, end: 20080509
  2. DIOVAN [Suspect]
     Indication: HYPERTENSION
     Route: 048
     Dates: start: 20071012, end: 20080509
  3. ALDACTONE [Concomitant]
     Dosage: DOSE UNKNOWN
     Route: 048
  4. MAINTATE [Concomitant]
     Dosage: DOSE UNKNOWN
     Route: 048
  5. PLETAL [Concomitant]
     Dosage: DOSE UNKNOWN
     Route: 048
  6. ALMARL [Concomitant]
     Dosage: DOSE UNKNOWN
     Route: 048
  7. CONIEL [Concomitant]
     Dosage: DOSE UNKNOWN
     Route: 048
  8. CEROCRAL [Concomitant]
     Dosage: DOSE UNKNOWN
     Route: 048

REACTIONS (2)
  - BLOOD CREATININE INCREASED [None]
  - MYALGIA [None]
